FAERS Safety Report 23366856 (Version 1)
Quarter: 2024Q1

REPORT INFORMATION
  Report Type: Report from Study
  Country: US (occurrence: US)
  Receive Date: 20240104
  Receipt Date: 20240104
  Transmission Date: 20240410
  Serious: Yes (Other)
  Sender: FDA-Public Use
  Company Number: US-INCYTE CORPORATION-2023IN012240

PATIENT

DRUGS (15)
  1. JAKAFI [Suspect]
     Active Substance: RUXOLITINIB
     Indication: Myeloproliferative neoplasm
     Dosage: 5 MILLIGRAM, BID
     Route: 065
     Dates: start: 20220610
  2. JAKAFI [Suspect]
     Active Substance: RUXOLITINIB
     Dosage: 5 MILLIGRAM, BID
     Route: 065
     Dates: start: 20220720
  3. HYDROXYUREA [Suspect]
     Active Substance: HYDROXYUREA
     Indication: Spontaneous haemorrhage
     Dosage: 2 X 500MG DAILY
     Route: 048
     Dates: end: 202206
  4. HYDROXYUREA [Suspect]
     Active Substance: HYDROXYUREA
     Indication: Platelet count increased
     Dosage: 500MG DAILY
     Route: 048
     Dates: start: 202211
  5. HYDROXYUREA [Suspect]
     Active Substance: HYDROXYUREA
     Dosage: 1000 MG DAILY
     Route: 048
     Dates: start: 202212
  6. ALLOPURINOL [Concomitant]
     Active Substance: ALLOPURINOL
     Indication: Blood uric acid increased
     Dosage: 1/2 X 100 MILLIGRAM TABLET DAILY
     Route: 065
  7. ASPIRIN [Concomitant]
     Active Substance: ASPIRIN
     Indication: Thrombosis prophylaxis
     Dosage: 81 MILLIGRAM, QPM
     Route: 048
  8. CLONIDINE HYDROCHLORIDE [Concomitant]
     Active Substance: CLONIDINE HYDROCHLORIDE
     Indication: Product used for unknown indication
     Dosage: 0.1 MILLIGRAM, BID
     Route: 048
  9. CYANOCOBALAMIN [Concomitant]
     Active Substance: CYANOCOBALAMIN
     Indication: Product used for unknown indication
     Dosage: 1000 MICROGRAM, QD
     Route: 048
  10. OSTEO BI-FLEX [CHONDROITIN SULFATE;GLUCOSAMINE HYDROCHLORIDE] [Concomitant]
     Indication: Product used for unknown indication
     Dosage: UNK
     Route: 065
  11. LOSARTAN [Concomitant]
     Active Substance: LOSARTAN
     Indication: Product used for unknown indication
     Dosage: 100 MILLIGRAM, QD
     Route: 065
  12. VITAMINS [Concomitant]
     Active Substance: VITAMINS
     Indication: Product used for unknown indication
     Dosage: UNK, QD
     Route: 048
  13. NIFEDIPINE [Concomitant]
     Active Substance: NIFEDIPINE
     Indication: Product used for unknown indication
     Dosage: 60 MILLIGRAM, QD
     Route: 048
  14. OMEGA-3 FATTY ACIDS [Concomitant]
     Active Substance: OMEGA-3 FATTY ACIDS
     Indication: Product used for unknown indication
     Dosage: 2X500 MILLIGRAM, QD
     Route: 048
  15. ROPINIROLE [Concomitant]
     Active Substance: ROPINIROLE
     Indication: Product used for unknown indication
     Dosage: 0.25 MILLIGRAM, 1 TABLET AT 5:00PM AND 2 TABLETS AT 9:00PM
     Route: 065

REACTIONS (16)
  - Hepatic perfusion disorder [Unknown]
  - Neutropenia [Recovering/Resolving]
  - COVID-19 [Unknown]
  - Dyspnoea [Unknown]
  - Chills [Unknown]
  - Dyspnoea exertional [Unknown]
  - Iron overload [Recovering/Resolving]
  - Malaise [Unknown]
  - Fatigue [Unknown]
  - Nervousness [Unknown]
  - Anxiety [Unknown]
  - Blood glucose increased [Unknown]
  - Bundle branch block left [Unknown]
  - Cardiac murmur [Unknown]
  - Product availability issue [Unknown]
  - Off label use [Unknown]

NARRATIVE: CASE EVENT DATE: 20220610
